FAERS Safety Report 8002327-3 (Version None)
Quarter: 2011Q4

REPORT INFORMATION
  Report Type: 
  Country: None (occurrence: None)
  Receive Date: 20111222
  Receipt Date: 20110422
  Transmission Date: 20120403
  Serious: No
  Sender: FDA-Public Use
  Company Number: US-GLAXOSMITHKLINE-A0924174A

PATIENT
  Age: 39 Year
  Sex: Male

DRUGS (1)
  1. NICOTINE POLACRILEX [Suspect]
     Indication: EX-TOBACCO USER
     Dates: start: 20110404, end: 20110419

REACTIONS (3)
  - CONDITION AGGRAVATED [None]
  - LIP DISORDER [None]
  - NICOTINE DEPENDENCE [None]
